FAERS Safety Report 4390906-4 (Version None)
Quarter: 2004Q3

REPORT INFORMATION
  Report Type: 
  Country: None (occurrence: None)
  Receive Date: 20040707
  Receipt Date: 20040628
  Transmission Date: 20050211
  Serious: Yes (Hospitalization)
  Sender: FDA-Public Use
  Company Number: 200412207JP

PATIENT
  Age: 62 Year
  Sex: Male
  Weight: 58 kg

DRUGS (4)
  1. AMARYL [Suspect]
     Indication: DIABETES MELLITUS
     Route: 048
     Dates: start: 20040401, end: 20040411
  2. UNKNOWN DRUG [Concomitant]
     Dosage: DOSE: UNK
     Dates: start: 20040401, end: 20040411
  3. UNKNOWN DRUG [Concomitant]
     Dosage: DOSE: UNK
     Dates: start: 20040401, end: 20040411
  4. UNKNOWN DRUG [Concomitant]
     Dosage: DOSE: UNK
     Dates: start: 20040401, end: 20040411

REACTIONS (4)
  - DRUG INEFFECTIVE [None]
  - EOSINOPHILIC PNEUMONIA [None]
  - FATIGUE [None]
  - LUNG CONSOLIDATION [None]
